FAERS Safety Report 8550075-3 (Version None)
Quarter: 2012Q2

REPORT INFORMATION
  Report Type: 
  Country: None (occurrence: None)
  Receive Date: 20120416
  Receipt Date: 20090709
  Transmission Date: 20120825
  Serious: Yes (Hospitalization, Other)
  Sender: FDA-Public Use
  Company Number: PHEH2009US06320

PATIENT
  Sex: Female

DRUGS (3)
  1. DIOVAN [Suspect]
     Indication: BLOOD PRESSURE ABNORMAL
     Dosage: 160 MG, QN, 160 MG, BID, 80 MG IN THE MORINIG, 160 MG IN THE EVENING
  2. SYNTHROID [Concomitant]
  3. METOPROLOL TARTRATE [Concomitant]

REACTIONS (3)
  - BLOOD PRESSURE INCREASED [None]
  - ABDOMINAL DISCOMFORT [None]
  - HYPOTENSION [None]
